FAERS Safety Report 8667610 (Version 2)
Quarter: 2013Q4

REPORT INFORMATION
  Report Type: Spontaneous
  Country: US (occurrence: US)
  Receive Date: 20120717
  Receipt Date: 20131101
  Transmission Date: 20140711
  Serious: No
  Sender: FDA-Public Use
  Company Number: US-009507513-1207USA000367

PATIENT
  Age: 39 Year
  Sex: Male

DRUGS (2)
  1. PROPECIA [Suspect]
     Indication: ANDROGENETIC ALOPECIA
     Dosage: 1 MG, QD
     Route: 048
     Dates: start: 200007
  2. PROPECIA [Suspect]
     Dosage: 1 MG, QD
     Route: 048
     Dates: start: 20120101

REACTIONS (4)
  - Abdominal pain upper [Unknown]
  - Abdominal pain [Unknown]
  - Abdominal pain upper [Not Recovered/Not Resolved]
  - Abdominal pain [Not Recovered/Not Resolved]
